FAERS Safety Report 9702088 (Version 2)
Quarter: 2013Q4

REPORT INFORMATION
  Report Type: Spontaneous
  Country: US (occurrence: US)
  Receive Date: 20131121
  Receipt Date: 20131121
  Transmission Date: 20140711
  Serious: Yes (Other)
  Sender: FDA-Public Use
  Company Number: US-MYLANLABS-2013S1019368

PATIENT
  Age: 46 Year
  Sex: Female

DRUGS (3)
  1. MONTELUKAST SODIUM TABLETS [Suspect]
     Indication: ASTHMA
     Route: 048
     Dates: start: 201301, end: 20130801
  2. XOPENEX [Concomitant]
     Route: 055
  3. VITAMINS [Concomitant]

REACTIONS (3)
  - Drug ineffective [Recovering/Resolving]
  - Asthma [Recovering/Resolving]
  - Dyspnoea [Recovering/Resolving]
